FAERS Safety Report 22250875 (Version 1)
Quarter: 2023Q2

REPORT INFORMATION
  Report Type: Spontaneous
  Country: US (occurrence: None)
  Receive Date: 20230424
  Receipt Date: 20230424
  Transmission Date: 20230721
  Serious: No
  Sender: FDA-Public Use
  Company Number: None

PATIENT
  Age: 82 Year
  Sex: Male
  Weight: 90.72 kg

DRUGS (20)
  1. ABIRATERONE [Suspect]
     Active Substance: ABIRATERONE
     Indication: Prostate cancer
     Dosage: FREQUENCY : ONCE;?
     Dates: start: 202303
  2. ALBUTEROL HFA [Concomitant]
  3. ALPRAZOLAM [Concomitant]
  4. AMLODIPINE [Concomitant]
     Active Substance: AMLODIPINE BESYLATE
  5. HERBALS\WITHANIA SOMNIFERA ROOT [Concomitant]
     Active Substance: HERBALS\WITHANIA SOMNIFERA ROOT
  6. ASPIRIN [Concomitant]
     Active Substance: ASPIRIN
  7. CETIRIZINE [Concomitant]
     Active Substance: CETIRIZINE HYDROCHLORIDE
  8. FAMOTIDINE [Concomitant]
     Active Substance: FAMOTIDINE
  9. LOSARTAN [Concomitant]
     Active Substance: LOSARTAN
  10. MYRBETRIQ [Concomitant]
     Active Substance: MIRABEGRON
  11. PREDNISONE [Concomitant]
     Active Substance: PREDNISONE
  12. ROSUVASTATIN [Concomitant]
     Active Substance: ROSUVASTATIN
  13. SERTRALINE [Concomitant]
     Active Substance: SERTRALINE HYDROCHLORIDE
  14. SILODOSIN [Concomitant]
     Active Substance: SILODOSIN
  15. HERBALS\TURMERIC [Concomitant]
     Active Substance: HERBALS\TURMERIC
  16. VITAMIN A [Concomitant]
  17. VITAMIN B12 [Concomitant]
     Active Substance: CYANOCOBALAMIN
  18. VITAMIN D4 [Concomitant]
  19. VITAMIN Z [Concomitant]
  20. ZINC [Concomitant]
     Active Substance: ZINC

REACTIONS (6)
  - Dry mouth [None]
  - Constipation [None]
  - Headache [None]
  - Lip swelling [None]
  - Stomatitis [None]
  - Urinary tract infection [None]
